FAERS Safety Report 23185741 (Version 2)
Quarter: 2025Q4

REPORT INFORMATION
  Report Type: Spontaneous
  Country: EU (occurrence: EU)
  Receive Date: 20231115
  Receipt Date: 20251217
  Transmission Date: 20260117
  Serious: Yes (Hospitalization, Other)
  Sender: BRISTOL-MYERS SQUIBB COMPANY
  Company Number: EU-BRISTOL-MYERS SQUIBB COMPANY-2023-160709

PATIENT
  Age: 63 Year
  Sex: Female

DRUGS (14)
  1. NIVOLUMAB [Suspect]
     Active Substance: NIVOLUMAB
     Indication: Metastatic malignant melanoma
     Dosage: DOSE : 2;
     Dates: start: 20220112
  2. NIVOLUMAB [Suspect]
     Active Substance: NIVOLUMAB
     Dosage: MONOTHERAPY
     Dates: start: 20220523
  3. NIVOLUMAB [Suspect]
     Active Substance: NIVOLUMAB
  4. NIVOLUMAB [Suspect]
     Active Substance: NIVOLUMAB
     Dosage: MONOTHERAPY SECOND DOSE
  5. NIVOLUMAB [Suspect]
     Active Substance: NIVOLUMAB
     Dosage: MONOTHERAPY THIRD DOSE
  6. NIVOLUMAB [Suspect]
     Active Substance: NIVOLUMAB
     Dosage: MONOTHERAPY FOURTH DOSE
  7. NIVOLUMAB [Suspect]
     Active Substance: NIVOLUMAB
     Dosage: MONOTHERAPY 13TH DOSE
  8. NIVOLUMAB [Suspect]
     Active Substance: NIVOLUMAB
     Dosage: MONOTHERAPY 13TH DOSE
  9. NIVOLUMAB [Suspect]
     Active Substance: NIVOLUMAB
     Dosage: MONOTHERAPY 14TH DOSE
  10. NIVOLUMAB [Suspect]
     Active Substance: NIVOLUMAB
     Dosage: MONOTHERAPY 37TH DOSE
  11. NIVOLUMAB [Suspect]
     Active Substance: NIVOLUMAB
     Dosage: MONOTHERAPY 38TH DOSE
  12. NIVOLUMAB [Suspect]
     Active Substance: NIVOLUMAB
     Dosage: MONOTHERAPY LAST DOSE OF NIVOLUMAB AND TREATMENT WAS TERMINATED AFTER A TOTAL OF 52 DOSES OF IMMUNOTHERAPY.
  13. IPILIMUMAB [Suspect]
     Active Substance: IPILIMUMAB
     Indication: Metastatic malignant melanoma
     Dates: start: 20220112
  14. IPILIMUMAB [Suspect]
     Active Substance: IPILIMUMAB
     Dosage: 7 WEEKS AFTER THE FIRST DOSE
     Dates: start: 20220228

REACTIONS (8)
  - Polyp [Unknown]
  - Haemorrhoids [Unknown]
  - Diverticulum intestinal [Unknown]
  - Rash maculo-papular [Recovered/Resolved]
  - Diarrhoea [Unknown]
  - Vitiligo [Unknown]
  - Vomiting [Unknown]
  - Fuchs^ syndrome [Unknown]

NARRATIVE: CASE EVENT DATE: 20220115
